FAERS Safety Report 15756340 (Version 2)
Quarter: 2019Q1

REPORT INFORMATION
  Report Type: Spontaneous
  Country: US (occurrence: US)
  Receive Date: 20181224
  Receipt Date: 20190119
  Transmission Date: 20190417
  Serious: Yes (Other)
  Sender: FDA-Public Use
  Company Number: US-TEVA-2018-US-990240

PATIENT
  Sex: Female

DRUGS (1)
  1. WARFARIN SODIUM TABLETS [Suspect]
     Active Substance: WARFARIN SODIUM
     Route: 065

REACTIONS (1)
  - Skin discolouration [Unknown]
